FAERS Safety Report 4612943-4 (Version None)
Quarter: 2005Q1

REPORT INFORMATION
  Report Type: 
  Country: None (occurrence: None)
  Receive Date: 20050318
  Receipt Date: 20050308
  Transmission Date: 20050727
  Serious: Yes (Life-Threatening, Hospitalization)
  Sender: FDA-Public Use
  Company Number: ES-ROCHE-397957

PATIENT
  Age: 91 Year
  Sex: Male

DRUGS (2)
  1. KETOROLAC TROMETHAMINE [Suspect]
     Indication: PHARYNGOLARYNGEAL PAIN
     Route: 048
     Dates: start: 20040919, end: 20040921
  2. SINTROM [Interacting]
     Indication: DRUG USE FOR UNKNOWN INDICATION
     Dosage: 1MG ON MONDAYS AND FRIDAYS AND 2MG ON TUESDAYS, WEDNESDAYS, THURSDAYS, SATURDAYS AND SUNDAYS.
     Route: 048
     Dates: start: 20040328, end: 20040921

REACTIONS (7)
  - CARDIOVASCULAR DISORDER [None]
  - DRUG INTERACTION [None]
  - EROSIVE DUODENITIS [None]
  - GASTROINTESTINAL HAEMORRHAGE [None]
  - HYPOTENSION [None]
  - INTERNATIONAL NORMALISED RATIO INCREASED [None]
  - MELAENA [None]
